FAERS Safety Report 9812134 (Version 1)
Quarter: 2014Q1

REPORT INFORMATION
  Report Type: Spontaneous
  Country: US (occurrence: US)
  Receive Date: 20140111
  Receipt Date: 20140111
  Transmission Date: 20141002
  Serious: Yes (Other)
  Sender: FDA-Public Use
  Company Number: US-ROCHE-1331134

PATIENT
  Age: 93 Year
  Sex: 0

DRUGS (1)
  1. AVASTIN [Suspect]
     Indication: RENAL CELL CARCINOMA
     Route: 042
     Dates: start: 201107, end: 201401

REACTIONS (3)
  - Drug ineffective [Unknown]
  - Back pain [Not Recovered/Not Resolved]
  - Metastases to lung [Not Recovered/Not Resolved]
